FAERS Safety Report 23895683 (Version 1)
Quarter: 2024Q2

REPORT INFORMATION
  Report Type: Spontaneous
  Country: IT (occurrence: IT)
  Receive Date: 20240524
  Receipt Date: 20240524
  Transmission Date: 20240716
  Serious: Yes (Other)
  Sender: FDA-Public Use
  Company Number: None

PATIENT
  Age: 55 Year
  Sex: Female

DRUGS (2)
  1. CISPLATIN [Suspect]
     Active Substance: CISPLATIN
     Indication: Bladder cancer
     Dosage: START OF THERAPY 05-OCT-2023 - THERAPY EVERY 21 DAYS - V CYCLE
     Dates: start: 20240116, end: 20240116
  2. GEMCITABINE [Suspect]
     Active Substance: GEMCITABINE
     Indication: Bladder cancer
     Dosage: START OF THERAPY 05-OCT-2023 - THERAPY EVERY 21 DAYS, ON DAYS 1 AND 8 - V CYCLE
     Dates: start: 20240116, end: 20240123

REACTIONS (1)
  - Pancytopenia [Recovering/Resolving]

NARRATIVE: CASE EVENT DATE: 20240205
